FAERS Safety Report 7774917-4 (Version None)
Quarter: 2011Q3

REPORT INFORMATION
  Report Type: 
  Country: None (occurrence: None)
  Receive Date: 20110921
  Receipt Date: 20110905
  Transmission Date: 20111222
  Serious: Yes (Other)
  Sender: FDA-Public Use
  Company Number: FK201101867

PATIENT
  Age: 56 Year
  Sex: Male

DRUGS (2)
  1. METHYLPREDNISOLONE SODIUM SUCCINATE [Suspect]
     Indication: STEROID THERAPY
  2. MMF [Concomitant]

REACTIONS (3)
  - ARTERIOVENOUS FISTULA SITE COMPLICATION [None]
  - EPSTEIN-BARR VIRUS ASSOCIATED LYMPHOPROLIFERATIVE DISORDER [None]
  - DIFFUSE LARGE B-CELL LYMPHOMA [None]
